FAERS Safety Report 6380329-0 (Version None)
Quarter: 2009Q3

REPORT INFORMATION
  Report Type: 
  Country: None (occurrence: None)
  Receive Date: 20090924
  Receipt Date: 20090908
  Transmission Date: 20100115
  Serious: Yes (Hospitalization)
  Sender: FDA-Public Use
  Company Number: THQ2009A04346

PATIENT
  Age: 53 Year
  Sex: Female

DRUGS (9)
  1. COMPETACT (PIOGLITAZONE HYDROCHLORIDE,METPORMIN HYDROCHLORIDE) [Suspect]
     Indication: TYPE 2 DIABETES MELLITUS
     Dosage: 15 MG PIOGLITAZONE HYDROCHLORIDE AND 850 MG METFORMIN TWICE DAILY, PER ORAL
     Route: 048
     Dates: start: 20090630, end: 20090730
  2. GLIMEPIRIDE [Concomitant]
  3. HYDROCHLOROTHIAZIDE, TELMISARTAN [Concomitant]
  4. AGEN  (AMLODIPINE HESILATE) [Concomitant]
  5. BISOPROLOL FUMARATE [Concomitant]
  6. TORVACARD (ATORVASTATIN) [Concomitant]
  7. THIOGAMMA (THIOCTIC ACID) [Concomitant]
  8. GLYVENOL (TRINENOSIDE) [Concomitant]
  9. GINKO BILOSA (GINKGO BILOBA) [Concomitant]

REACTIONS (7)
  - ASTHENIA [None]
  - CHILLS [None]
  - HYPERTENSIVE CRISIS [None]
  - PARAESTHESIA [None]
  - PHAEOCHROMOCYTOMA [None]
  - SECONDARY HYPERTENSION [None]
  - VERTIGO [None]
